FAERS Safety Report 5278960-9 (Version None)
Quarter: 2007Q1

REPORT INFORMATION
  Report Type: 
  Country: None (occurrence: None)
  Receive Date: 20070328
  Receipt Date: 20061120
  Transmission Date: 20070707
  Serious: No
  Sender: FDA-Public Use
  Company Number: US-AMGEN-KDL200772

PATIENT
  Sex: Female

DRUGS (6)
  1. NEULASTA [Suspect]
     Indication: CHEMOTHERAPY
     Route: 065
     Dates: start: 20061024
  2. ALOXI [Concomitant]
     Route: 065
     Dates: start: 20061024
  3. EMEND [Concomitant]
     Route: 065
     Dates: start: 20061024
  4. ZOFRAN [Concomitant]
     Route: 065
     Dates: start: 20061024
  5. ADRIAMYCIN PFS [Concomitant]
     Route: 065
     Dates: start: 20061024
  6. CYTOXAN [Concomitant]
     Route: 065
     Dates: start: 20061024

REACTIONS (1)
  - WHITE BLOOD CELL COUNT DECREASED [None]
